FAERS Safety Report 7723563-7 (Version None)
Quarter: 2011Q3

REPORT INFORMATION
  Report Type: 
  Country: None (occurrence: None)
  Receive Date: 20110901
  Receipt Date: 20110825
  Transmission Date: 20111222
  Serious: No
  Sender: FDA-Public Use
  Company Number: US-PFIZER INC-2011198863

PATIENT
  Age: 4 Year
  Weight: 29 kg

DRUGS (2)
  1. ZITHROMAX [Suspect]
     Indication: INFECTION
     Dosage: 100 MG/5 ML DAILY FOR 7 DAYS
     Route: 048
  2. AMOXICILLIN [Suspect]
     Indication: INFECTION
     Dosage: UNK

REACTIONS (2)
  - MALAISE [None]
  - UNDERDOSE [None]
